FAERS Safety Report 12831475 (Version 1)
Quarter: 2016Q4

REPORT INFORMATION
  Report Type: Report from Study
  Country: None (occurrence: CO)
  Receive Date: 20161009
  Receipt Date: 20161009
  Transmission Date: 20170207
  Serious: Yes (Death)
  Sender: FDA-Public Use
  Company Number: CO-ABBVIE-16P-036-1748609-00

PATIENT
  Age: 16 Year
  Sex: Male
  Weight: 60 kg

DRUGS (1)
  1. HUMIRA [Suspect]
     Active Substance: ADALIMUMAB
     Indication: JUVENILE IDIOPATHIC ARTHRITIS
     Route: 058
     Dates: start: 20140909, end: 20160810

REACTIONS (4)
  - Cardio-respiratory arrest [Fatal]
  - Diarrhoea [Fatal]
  - Arthralgia [Fatal]
  - Cough [Fatal]

NARRATIVE: CASE EVENT DATE: 20160913
